FAERS Safety Report 16881441 (Version 1)
Quarter: 2019Q4

REPORT INFORMATION
  Report Type: Spontaneous
  Country: US (occurrence: US)
  Receive Date: 20191003
  Receipt Date: 20191003
  Transmission Date: 20200122
  Serious: Yes (Hospitalization)
  Sender: FDA-Public Use
  Company Number: None

PATIENT
  Age: 54 Year
  Sex: Female
  Weight: 69.75 kg

DRUGS (10)
  1. CEFAZOLIN [Concomitant]
     Active Substance: CEFAZOLIN
     Dates: start: 20190429, end: 20190429
  2. CELECOXIB. [Concomitant]
     Active Substance: CELECOXIB
     Dates: start: 20190429, end: 20190429
  3. HYDROMORPHONE [Concomitant]
     Active Substance: HYDROMORPHONE
     Dates: start: 20190428, end: 20190429
  4. GABAPENTIN. [Concomitant]
     Active Substance: GABAPENTIN
     Dates: start: 20190429, end: 20190429
  5. LIDOCAINE. [Suspect]
     Active Substance: LIDOCAINE
     Indication: PAIN MANAGEMENT
     Route: 041
     Dates: start: 20190429, end: 20190430
  6. PROPOFOL. [Concomitant]
     Active Substance: PROPOFOL
     Dates: start: 20190429, end: 20190429
  7. PROMETHAZINE [Concomitant]
     Active Substance: PROMETHAZINE HYDROCHLORIDE
     Dates: start: 20190428, end: 20190428
  8. ONDANSETRON [Concomitant]
     Active Substance: ONDANSETRON
     Dates: start: 20190428, end: 20190429
  9. ROCURONIUM [Concomitant]
     Active Substance: ROCURONIUM BROMIDE
     Dates: start: 20190429, end: 20190429
  10. MIDAZOLAM [Concomitant]
     Active Substance: MIDAZOLAM HYDROCHLORIDE
     Dates: start: 20190429, end: 20190429

REACTIONS (1)
  - Diplopia [None]

NARRATIVE: CASE EVENT DATE: 20190430
